FAERS Safety Report 4645864-1 (Version None)
Quarter: 2005Q2

REPORT INFORMATION
  Report Type: 
  Country: None (occurrence: None)
  Receive Date: 20050427
  Receipt Date: 20040513
  Transmission Date: 20051028
  Serious: Yes (Other)
  Sender: FDA-Public Use
  Company Number: US-BRISTOL-MYERS SQUIBB COMPANY-12586541

PATIENT
  Age: 4 Month
  Sex: Male

DRUGS (3)
  1. CAPTOPRIL [Suspect]
     Indication: VENTRICULAR SEPTAL DEFECT
     Dosage: STARTED ^A FEW MONTHS AGO^
     Route: 048
     Dates: start: 20040101, end: 20040101
  2. LASIX [Concomitant]
  3. SPIRONOLACTONE [Concomitant]

REACTIONS (2)
  - BLOOD BILIRUBIN INCREASED [None]
  - JAUNDICE [None]
